FAERS Safety Report 4683865-8 (Version None)
Quarter: 2005Q2

REPORT INFORMATION
  Report Type: 
  Country: None (occurrence: None)
  Receive Date: 20050602
  Receipt Date: 20050307
  Transmission Date: 20051028
  Serious: No
  Sender: FDA-Public Use
  Company Number: 200421107BWH

PATIENT
  Age: 42 Year
  Sex: Female

DRUGS (2)
  1. LEVITRA [Suspect]
     Indication: LIBIDO DISORDER
     Dosage: 10 MG, TIW, ORAL
     Route: 048
     Dates: start: 20041122
  2. CELEBREX [Concomitant]

REACTIONS (1)
  - LIBIDO INCREASED [None]
